FAERS Safety Report 7050899-8 (Version None)
Quarter: 2010Q4

REPORT INFORMATION
  Report Type: 
  Country: None (occurrence: None)
  Receive Date: 20101018
  Receipt Date: 20101018
  Transmission Date: 20110411
  Serious: Yes (Life-Threatening)
  Sender: FDA-Public Use
  Company Number: None

PATIENT
  Sex: Male
  Weight: 136.0791 kg

DRUGS (3)
  1. AMLODIPINE BESYLATE AND BENAZEPRIL HCL [Suspect]
     Indication: HYPERTENSION
     Dosage: 1 CAPSULE DAILY IN PM PO
     Route: 048
     Dates: start: 20100801, end: 20101005
  2. AMLODIPINE BESYLATE AND BENAZEPRIL HYDROCHLORIDE [Suspect]
     Indication: HYPERTENSION
     Dosage: 1 CAPSULE DAILY IN PM PO
     Route: 048
     Dates: start: 20101006, end: 20101013
  3. LOTREL [Suspect]

REACTIONS (5)
  - BLOOD PRESSURE INCREASED [None]
  - DISCOMFORT [None]
  - MEDICATION ERROR [None]
  - PAIN [None]
  - PRODUCT COMMINGLING [None]
